FAERS Safety Report 20359289 (Version 1)
Quarter: 2022Q1

REPORT INFORMATION
  Report Type: Spontaneous
  Country: US (occurrence: US)
  Receive Date: 20220121
  Receipt Date: 20220121
  Transmission Date: 20220423
  Serious: Yes (Disabling, Other)
  Sender: FDA-Public Use
  Company Number: US-ORGANON-O2201USA001191

PATIENT
  Sex: Male

DRUGS (4)
  1. REMERON [Suspect]
     Active Substance: MIRTAZAPINE
     Indication: Depression
     Dosage: UNK
     Route: 048
     Dates: start: 2005
  2. REMERON [Suspect]
     Active Substance: MIRTAZAPINE
     Indication: Suspected suicide attempt
  3. DOXYCYCLINE HYDROCHLORIDE [Suspect]
     Active Substance: DOXYCYCLINE HYDROCHLORIDE
     Indication: Depression
     Dosage: UNK
     Dates: start: 2005
  4. DOXYCYCLINE HYDROCHLORIDE [Suspect]
     Active Substance: DOXYCYCLINE HYDROCHLORIDE
     Indication: Suspected suicide attempt

REACTIONS (3)
  - Neoplasm [Unknown]
  - Gynaecomastia [Not Recovered/Not Resolved]
  - Hormone level abnormal [Unknown]

NARRATIVE: CASE EVENT DATE: 20050501
